FAERS Safety Report 16544707 (Version 1)
Quarter: 2019Q3

REPORT INFORMATION
  Report Type: Spontaneous
  Country: US (occurrence: US)
  Receive Date: 20190708
  Receipt Date: 20190708
  Transmission Date: 20191004
  Serious: Yes (Hospitalization)
  Sender: FDA-Public Use
  Company Number: None

PATIENT
  Age: 80 Year
  Sex: Female
  Weight: 52.65 kg

DRUGS (12)
  1. SENNA LAXATIVE [Concomitant]
     Active Substance: SENNOSIDES
  2. RANITIDINE. [Concomitant]
     Active Substance: RANITIDINE
  3. BACLOFEN. [Concomitant]
     Active Substance: BACLOFEN
  4. IBRANCE [Suspect]
     Active Substance: PALBOCICLIB
     Indication: BREAST CANCER FEMALE
     Route: 048
     Dates: start: 20180810, end: 20190708
  5. LETROZOLE. [Concomitant]
     Active Substance: LETROZOLE
  6. HYDROMORPHONE [Concomitant]
     Active Substance: HYDROMORPHONE
  7. AZITHROMYCIN ANHYDROUS. [Concomitant]
     Active Substance: AZITHROMYCIN ANHYDROUS
  8. TYLENOL EXTRA STRENGTH [Concomitant]
     Active Substance: ACETAMINOPHEN
  9. FENTANYL. [Concomitant]
     Active Substance: FENTANYL
  10. MULTIVITAMIN [Concomitant]
     Active Substance: VITAMINS
  11. CELEBREX [Concomitant]
     Active Substance: CELECOXIB
  12. IMITREX [Concomitant]
     Active Substance: SUMATRIPTAN SUCCINATE

REACTIONS (1)
  - Disease progression [None]

NARRATIVE: CASE EVENT DATE: 20190708
